FAERS Safety Report 8657419 (Version 2)
Quarter: 2013Q3

REPORT INFORMATION
  Report Type: Spontaneous
  Country: CA (occurrence: CA)
  Receive Date: 20120710
  Receipt Date: 20130819
  Transmission Date: 20140515
  Serious: Yes (Life-Threatening, Other)
  Sender: FDA-Public Use
  Company Number: CA-ELI_LILLY_AND_COMPANY-CA201207001437

PATIENT
  Sex: Female

DRUGS (1)
  1. HUMULIN 30% REGULAR, 70% NPH [Suspect]
     Dosage: UNK

REACTIONS (9)
  - Cardiac arrest [Unknown]
  - Fall [Unknown]
  - Wheezing [Unknown]
  - Cardiac disorder [Unknown]
  - Malaise [Unknown]
  - Cough [Unknown]
  - Retching [Unknown]
  - Nightmare [Unknown]
  - Drug dependence [Unknown]
